FAERS Safety Report 21373179 (Version 5)
Quarter: 2023Q2

REPORT INFORMATION
  Report Type: Spontaneous
  Country: US (occurrence: US)
  Receive Date: 20220924
  Receipt Date: 20230509
  Transmission Date: 20230722
  Serious: Yes (Other)
  Sender: FDA-Public Use
  Company Number: US-CTI BIOPHARMA-2022US02929

PATIENT

DRUGS (4)
  1. VONJO [Suspect]
     Active Substance: PACRITINIB
     Indication: Myelofibrosis
     Dosage: 200 MILLIGRAM, BID
     Route: 048
     Dates: start: 20220623
  2. HYDROXYUREA [Concomitant]
     Active Substance: HYDROXYUREA
  3. PANTOPRAZOLE [Concomitant]
     Active Substance: PANTOPRAZOLE
  4. TYLENOL [Concomitant]
     Active Substance: ACETAMINOPHEN
     Indication: Back pain
     Dosage: UNK

REACTIONS (18)
  - Dehydration [Unknown]
  - Blood potassium decreased [Unknown]
  - Decreased appetite [Unknown]
  - Asthenia [Unknown]
  - Increased appetite [Unknown]
  - Energy increased [Unknown]
  - Skin laceration [Unknown]
  - Back pain [Unknown]
  - White blood cell count decreased [Unknown]
  - Brain fog [Unknown]
  - Product dose omission issue [Unknown]
  - Insomnia [Unknown]
  - Dizziness [Unknown]
  - Nausea [Unknown]
  - Vomiting [Unknown]
  - Diarrhoea [Unknown]
  - Platelet count decreased [Unknown]
  - Epistaxis [Unknown]

NARRATIVE: CASE EVENT DATE: 20230401
